FAERS Safety Report 20145917 (Version 1)
Quarter: 2021Q4

REPORT INFORMATION
  Report Type: Spontaneous
  Country: CN (occurrence: CN)
  Receive Date: 20211203
  Receipt Date: 20211203
  Transmission Date: 20220303
  Serious: Yes (Hospitalization, Other)
  Sender: FDA-Public Use
  Company Number: CN-BAYER-2021A261324

PATIENT
  Age: 60 Year
  Sex: Male
  Weight: 65 kg

DRUGS (2)
  1. IOPROMIDE [Suspect]
     Active Substance: IOPROMIDE
     Indication: Chest pain
     Dosage: 40 ML, ONCE
     Route: 041
     Dates: start: 20211119, end: 20211119
  2. IOPROMIDE [Suspect]
     Active Substance: IOPROMIDE
     Indication: Angiocardiogram

REACTIONS (6)
  - Apnoea [Recovering/Resolving]
  - Cardiac arrest [Recovering/Resolving]
  - Altered state of consciousness [Recovered/Resolved]
  - Unresponsive to stimuli [Recovering/Resolving]
  - Vomiting [Recovering/Resolving]
  - Cyanosis [Recovering/Resolving]

NARRATIVE: CASE EVENT DATE: 20211119
